FAERS Safety Report 6787709-X (Version None)
Quarter: 2010Q2

REPORT INFORMATION
  Report Type: 
  Country: None (occurrence: None)
  Receive Date: 20100623
  Receipt Date: 20070905
  Transmission Date: 20101027
  Serious: Yes (Other)
  Sender: FDA-Public Use
  Company Number: US-PFIZER INC-2007060984

PATIENT
  Sex: Female
  Weight: 46 kg

DRUGS (7)
  1. DEPO-SUBQ PROVERA 104 [Suspect]
     Indication: CONTRACEPTION
     Route: 058
     Dates: start: 20051207, end: 20051207
  2. DEPO-SUBQ PROVERA 104 [Suspect]
     Route: 058
     Dates: start: 20060410, end: 20060410
  3. DEPO-SUBQ PROVERA 104 [Suspect]
     Route: 058
     Dates: start: 20060817, end: 20060817
  4. DEPO-SUBQ PROVERA 104 [Suspect]
     Route: 058
     Dates: start: 20070228, end: 20070228
  5. DEPO-SUBQ PROVERA 104 [Suspect]
     Dosage: LAST INJECTION
     Route: 058
     Dates: start: 20070514, end: 20070514
  6. NEXIUM [Concomitant]
     Indication: GASTROOESOPHAGEAL REFLUX DISEASE
  7. PEPCID [Concomitant]
     Indication: GASTROOESOPHAGEAL REFLUX DISEASE

REACTIONS (1)
  - INJECTION SITE REACTION [None]
